FAERS Safety Report 6400062-6 (Version None)
Quarter: 2009Q4

REPORT INFORMATION
  Report Type: 
  Country: None (occurrence: None)
  Receive Date: 20091014
  Receipt Date: 20091006
  Transmission Date: 20100525
  Serious: Yes (Hospitalization)
  Sender: FDA-Public Use
  Company Number: A0811469A

PATIENT
  Age: 39 Year
  Sex: Female

DRUGS (1)
  1. AVANDAMET [Suspect]
     Dates: start: 20060727, end: 20061201

REACTIONS (1)
  - MYOCARDIAL INFARCTION [None]
